FAERS Safety Report 8935222 (Version 1)
Quarter: 2012Q4

REPORT INFORMATION
  Report Type: 
  Country: DE (occurrence: DE)
  Receive Date: 20121129
  Receipt Date: 20121129
  Transmission Date: 20130627
  Serious: Yes (Hospitalization)
  Sender: FDA-Public Use
  Company Number: DE-ELI_LILLY_AND_COMPANY-DE201211005635

PATIENT
  Age: 65 Year
  Sex: Female

DRUGS (2)
  1. FORSTEO [Suspect]
     Indication: OSTEOPOROSIS
     Dosage: UNK, qd
     Route: 058
     Dates: start: 20110823
  2. VITAMIN D NOS [Concomitant]
     Dosage: UNK, unknown
     Route: 065

REACTIONS (2)
  - Borrelia infection [Recovering/Resolving]
  - Arthropod bite [Recovering/Resolving]
